FAERS Safety Report 6862759-3 (Version None)
Quarter: 2010Q2

REPORT INFORMATION
  Report Type: 
  Country: None (occurrence: None)
  Receive Date: 20100528
  Receipt Date: 20100315
  Transmission Date: 20101027
  Serious: No
  Sender: FDA-Public Use
  Company Number: 2010034190

PATIENT
  Age: 70 Year
  Sex: Female
  Weight: 45 kg

DRUGS (6)
  1. TOVIAZ [Suspect]
     Indication: HYPERTONIC BLADDER
     Dosage: 8 MG
     Dates: start: 20100314
  2. OXYBUTYNIN CHLORIDE [Concomitant]
  3. TEMAZEPAM [Concomitant]
  4. FISH OIL (FISH OIL) [Concomitant]
  5. GLUCOSAMINE W/CHONDROITIN SULFATES (ASCORBIC ACID, CHONDROITIN SULFATE [Concomitant]
  6. LUTEIN (XANTHOPHYLL) [Concomitant]

REACTIONS (4)
  - DYSURIA [None]
  - HEAD DISCOMFORT [None]
  - HEART RATE INCREASED [None]
  - URINARY HESITATION [None]
